FAERS Safety Report 8923203 (Version 1)
Quarter: 2012Q4

REPORT INFORMATION
  Report Type: 
  Country: VE (occurrence: VE)
  Receive Date: 20121124
  Receipt Date: 20121124
  Transmission Date: 20130627
  Serious: Yes (Death, Other)
  Sender: FDA-Public Use
  Company Number: PHHY2011VE117458

PATIENT
  Age: 73 None
  Sex: Female

DRUGS (6)
  1. SANDOSTATIN LAR [Suspect]
     Indication: COLON CANCER METASTATIC
     Dosage: UNK UKN, UNK
     Route: 030
     Dates: start: 20100301, end: 20100301
  2. MULTIVITAMINS [Concomitant]
  3. RADIOTHERAPY [Concomitant]
     Indication: COLON CANCER METASTATIC
  4. RADIOTHERAPY [Concomitant]
     Indication: METASTASES TO UTERUS
  5. CHEMOTHERAPEUTICS [Concomitant]
     Indication: COLON CANCER METASTATIC
  6. CHEMOTHERAPEUTICS [Concomitant]
     Indication: METASTASES TO UTERUS

REACTIONS (3)
  - Intestinal infarction [Fatal]
  - Metastases to spine [Not Recovered/Not Resolved]
  - Spinal pain [Not Recovered/Not Resolved]
